FAERS Safety Report 18513514 (Version 2)
Quarter: 2020Q4

REPORT INFORMATION
  Report Type: Spontaneous
  Country: TR (occurrence: TR)
  Receive Date: 20201117
  Receipt Date: 20201216
  Transmission Date: 20210114
  Serious: No
  Sender: FDA-Public Use
  Company Number: TR-PFIZER INC-2020450295

PATIENT
  Age: 41 Year
  Sex: Female
  Weight: 100 kg

DRUGS (5)
  1. INLYTA [Suspect]
     Active Substance: AXITINIB
     Dosage: 5 MG, 1X/DAY (MORNING)
     Dates: start: 20201115
  2. INLYTA [Suspect]
     Active Substance: AXITINIB
     Indication: ADENOID CYSTIC CARCINOMA
     Dosage: 5 MG, 2X/DAY (MORNING AND EVENING)
     Dates: start: 202007
  3. INLYTA [Suspect]
     Active Substance: AXITINIB
     Dosage: 25 AMOUNT
  4. ARVELES [Concomitant]
     Active Substance: DEXKETOPROFEN
     Dosage: UNK
  5. PROZAC [Concomitant]
     Active Substance: FLUOXETINE HYDROCHLORIDE
     Dosage: UNK

REACTIONS (10)
  - Alanine aminotransferase increased [Recovering/Resolving]
  - Aspartate aminotransferase increased [Recovering/Resolving]
  - Product use in unapproved indication [Unknown]
  - Visual impairment [Recovered/Resolved]
  - Drug effective for unapproved indication [Unknown]
  - Hepatic enzyme increased [Recovering/Resolving]
  - Off label use [Unknown]
  - Headache [Recovered/Resolved]
  - Hypotension [Recovered/Resolved]
  - Alopecia [Unknown]

NARRATIVE: CASE EVENT DATE: 2020
